FAERS Safety Report 24432890 (Version 1)
Quarter: 2024Q4

REPORT INFORMATION
  Report Type: Spontaneous
  Country: RO (occurrence: RO)
  Receive Date: 20241014
  Receipt Date: 20241014
  Transmission Date: 20250114
  Serious: Yes (Hospitalization, Other)
  Sender: PANACEA BIOTEC PHARMA LIMITED
  Company Number: RO-PBT-009800

PATIENT
  Age: 6 Month
  Sex: Female

DRUGS (2)
  1. TACROLIMUS [Suspect]
     Active Substance: TACROLIMUS
     Indication: Prophylaxis against transplant rejection
     Route: 065
  2. METHYLPREDNISOLONE [Suspect]
     Active Substance: METHYLPREDNISOLONE
     Indication: Prophylaxis against transplant rejection
     Route: 065

REACTIONS (9)
  - Gastroenteritis rotavirus [Unknown]
  - Gastroenteritis bacterial [Unknown]
  - Renal tubular acidosis [Recovered/Resolved]
  - Drug level increased [Unknown]
  - Mitochondrial enzyme deficiency [Recovered/Resolved]
  - Condition aggravated [Recovered/Resolved]
  - Cytomegalovirus infection [Unknown]
  - Epstein-Barr virus infection [Unknown]
  - Post transplant lymphoproliferative disorder [Recovered/Resolved]
